FAERS Safety Report 21791338 (Version 1)
Quarter: 2022Q4

REPORT INFORMATION
  Report Type: Report from Study
  Country: FR (occurrence: FR)
  Receive Date: 20221228
  Receipt Date: 20221228
  Transmission Date: 20230112
  Serious: Yes (Other)
  Sender: FDA-Public Use
  Company Number: FR-GILEAD-2022-0572386

PATIENT
  Sex: Female
  Weight: 62 kg

DRUGS (18)
  1. SACITUZUMAB GOVITECAN-HZIY [Suspect]
     Active Substance: SACITUZUMAB GOVITECAN-HZIY
     Indication: Triple negative breast cancer
     Dosage: 10 MG/KG, CYCLE 1 D1, D8
     Route: 042
     Dates: start: 20211217
  2. SACITUZUMAB GOVITECAN-HZIY [Suspect]
     Active Substance: SACITUZUMAB GOVITECAN-HZIY
     Dosage: 10 MG/KG, CYCLE 2 D1, D2
     Route: 042
     Dates: start: 20220114, end: 20220121
  3. SACITUZUMAB GOVITECAN-HZIY [Suspect]
     Active Substance: SACITUZUMAB GOVITECAN-HZIY
     Dosage: 10 MG/KG, CYCLE 3 D1, D2
     Route: 042
     Dates: start: 20220204, end: 20220211
  4. SACITUZUMAB GOVITECAN-HZIY [Suspect]
     Active Substance: SACITUZUMAB GOVITECAN-HZIY
     Dosage: 10 MG/KG, C4D1
     Route: 042
     Dates: start: 20220225, end: 20220304
  5. SACITUZUMAB GOVITECAN-HZIY [Suspect]
     Active Substance: SACITUZUMAB GOVITECAN-HZIY
     Dosage: 7.5 MG/KG, C5D1
     Route: 042
     Dates: start: 20220328
  6. SACITUZUMAB GOVITECAN-HZIY [Suspect]
     Active Substance: SACITUZUMAB GOVITECAN-HZIY
     Dosage: 7.5 MG/KG, C6D1, D8
     Route: 042
     Dates: start: 20220419, end: 20220426
  7. SACITUZUMAB GOVITECAN-HZIY [Suspect]
     Active Substance: SACITUZUMAB GOVITECAN-HZIY
     Dosage: 7.5 MG/KG, C7D1, D8
     Route: 042
     Dates: start: 20220510, end: 20220517
  8. SACITUZUMAB GOVITECAN-HZIY [Suspect]
     Active Substance: SACITUZUMAB GOVITECAN-HZIY
     Dosage: 7.5 MG/KG, C8D1, D8
     Route: 042
     Dates: start: 20220607, end: 20220613
  9. SACITUZUMAB GOVITECAN-HZIY [Suspect]
     Active Substance: SACITUZUMAB GOVITECAN-HZIY
     Dosage: 7.5 MG/KG, C9 D1
     Route: 042
     Dates: start: 20220728, end: 20220728
  10. SACITUZUMAB GOVITECAN-HZIY [Suspect]
     Active Substance: SACITUZUMAB GOVITECAN-HZIY
     Dosage: 7.5 MG/KG, C10 D1/D8
     Route: 042
     Dates: start: 20220719, end: 20220727
  11. SACITUZUMAB GOVITECAN-HZIY [Suspect]
     Active Substance: SACITUZUMAB GOVITECAN-HZIY
     Dosage: 7.5 MG/KG, C11 D1/D8
     Route: 042
     Dates: start: 20220809, end: 20220817
  12. SACITUZUMAB GOVITECAN-HZIY [Suspect]
     Active Substance: SACITUZUMAB GOVITECAN-HZIY
     Dosage: 7.5 MG/KG, C12 D1/D8
     Route: 042
     Dates: start: 20220830, end: 20220906
  13. SACITUZUMAB GOVITECAN-HZIY [Suspect]
     Active Substance: SACITUZUMAB GOVITECAN-HZIY
     Dosage: 7.5 MG/KG, C13 D1
     Route: 042
     Dates: start: 20220927, end: 20220927
  14. SACITUZUMAB GOVITECAN-HZIY [Suspect]
     Active Substance: SACITUZUMAB GOVITECAN-HZIY
     Dosage: 5 MG/KG, C13 D8
     Route: 042
     Dates: start: 20221004, end: 20221004
  15. SACITUZUMAB GOVITECAN-HZIY [Suspect]
     Active Substance: SACITUZUMAB GOVITECAN-HZIY
     Dosage: 5 MG/KG, C14 D1/D8
     Route: 042
     Dates: start: 20221018, end: 20221026
  16. SACITUZUMAB GOVITECAN-HZIY [Suspect]
     Active Substance: SACITUZUMAB GOVITECAN-HZIY
     Dosage: 5 MG/KG, C15 D1/D8
     Route: 042
     Dates: start: 20221108, end: 20221115
  17. SACITUZUMAB GOVITECAN-HZIY [Suspect]
     Active Substance: SACITUZUMAB GOVITECAN-HZIY
     Dosage: 5 MG/KG, C16 D1/D8
     Route: 042
     Dates: start: 20221129, end: 20221206
  18. SACITUZUMAB GOVITECAN-HZIY [Suspect]
     Active Substance: SACITUZUMAB GOVITECAN-HZIY
     Dosage: 5 MG/KG, C17 D1, D8 (UNSPECIFIED)
     Route: 042
     Dates: start: 20221220

REACTIONS (5)
  - Neutropenia [Recovering/Resolving]
  - Neutropenia [Unknown]
  - Cholinergic syndrome [Unknown]
  - Asthenia [Unknown]
  - Off label use [Unknown]

NARRATIVE: CASE EVENT DATE: 20220107
